FAERS Safety Report 8151567-1 (Version None)
Quarter: 2012Q1

REPORT INFORMATION
  Report Type: 
  Country: None (occurrence: None)
  Receive Date: 20120220
  Receipt Date: 20120213
  Transmission Date: 20120608
  Serious: Yes (Life-Threatening, Hospitalization, Other)
  Sender: FDA-Public Use
  Company Number: DK-ROCHE-775426

PATIENT
  Sex: Male
  Weight: 80 kg

DRUGS (13)
  1. IMURAN [Suspect]
     Indication: RHEUMATOID ARTHRITIS
     Route: 048
  2. ASPIRIN [Concomitant]
     Dosage: FREQUENCY: QD
     Route: 048
  3. METFORMIN HCL [Concomitant]
     Indication: DIABETES MELLITUS
     Dosage: FREQUENCY: QD
     Route: 048
  4. ACTEMRA [Suspect]
     Route: 042
  5. METOPROLOL SUCCINATE [Concomitant]
     Indication: HYPERTENSION
     Route: 048
  6. ACTEMRA [Suspect]
     Indication: RHEUMATOID ARTHRITIS
     Dosage: STRENGTH 8MG/KG
     Route: 042
  7. ACTEMRA [Suspect]
     Route: 042
  8. ACTEMRA [Suspect]
     Route: 042
  9. ACTEMRA [Suspect]
     Route: 042
     Dates: start: 20110310, end: 20110316
  10. ACETAMINOPHEN [Concomitant]
     Indication: PAIN
     Route: 048
  11. AMLODIPINE [Concomitant]
     Indication: HYPERTENSION
     Dosage: FREQUENCY: QD
     Route: 048
  12. ACTEMRA [Suspect]
     Route: 042
  13. IMURAN [Suspect]
     Dosage: FREQUENCY: QD
     Route: 048
     Dates: start: 20080101, end: 20110316

REACTIONS (5)
  - SEPTIC ARTHRITIS STAPHYLOCOCCAL [None]
  - DISSEMINATED INTRAVASCULAR COAGULATION [None]
  - SEPSIS [None]
  - HYPOTENSION [None]
  - LEUKOPENIA [None]
